FAERS Safety Report 10078820 (Version 11)
Quarter: 2015Q2

REPORT INFORMATION
  Report Type: Spontaneous
  Country: US (occurrence: US)
  Receive Date: 20140415
  Receipt Date: 20150506
  Transmission Date: 20150821
  Serious: Yes (Other)
  Sender: FDA-Public Use
  Company Number: US-009507513-1404USA004033

PATIENT
  Sex: Male
  Weight: 91.61 kg

DRUGS (3)
  1. PROPECIA [Suspect]
     Active Substance: FINASTERIDE
     Dosage: 1 MG, QD
     Route: 048
     Dates: end: 201009
  2. PROPECIA [Suspect]
     Active Substance: FINASTERIDE
     Indication: ALOPECIA
     Dosage: 1 MG, QD
     Route: 048
     Dates: start: 20070510
  3. PROPECIA [Suspect]
     Active Substance: FINASTERIDE
     Dosage: 1 MG, QOD
     Route: 048
     Dates: start: 200908

REACTIONS (36)
  - Cognitive disorder [Unknown]
  - Back pain [Unknown]
  - Ocular hyperaemia [Not Recovered/Not Resolved]
  - Pain in extremity [Not Recovered/Not Resolved]
  - Depression [Recovered/Resolved]
  - Fatigue [Recovering/Resolving]
  - Swelling face [Unknown]
  - Attention deficit/hyperactivity disorder [Unknown]
  - Pilonidal cyst [Unknown]
  - Asthenia [Recovered/Resolved]
  - Blood cholesterol increased [Unknown]
  - Snoring [Unknown]
  - Flushing [Not Recovered/Not Resolved]
  - Mood swings [Unknown]
  - Abdominal pain [Unknown]
  - Drug level increased [Unknown]
  - Suicidal ideation [Unknown]
  - Anxiety [Recovered/Resolved]
  - Myalgia [Unknown]
  - Dry eye [Unknown]
  - Hepatic enzyme increased [Unknown]
  - Hypogonadism [Not Recovered/Not Resolved]
  - Pilonidal cyst [Unknown]
  - Malaise [Unknown]
  - Androgen deficiency [Unknown]
  - Melanocytic naevus [Unknown]
  - Erectile dysfunction [Not Recovered/Not Resolved]
  - Sexual dysfunction [Not Recovered/Not Resolved]
  - Ejaculation disorder [Unknown]
  - Colitis ulcerative [Unknown]
  - Hernia [Unknown]
  - Testicular atrophy [Unknown]
  - Libido decreased [Recovering/Resolving]
  - Inappropriate schedule of drug administration [Unknown]
  - Skin lesion excision [Unknown]
  - Gynaecomastia [Not Recovered/Not Resolved]

NARRATIVE: CASE EVENT DATE: 2007
